FAERS Safety Report 8675332 (Version 3)
Quarter: 2012Q4

REPORT INFORMATION
  Report Type: 
  Country: US (occurrence: US)
  Receive Date: 20120720
  Receipt Date: 20120830
  Transmission Date: 20130627
  Serious: Yes (Death)
  Sender: FDA-Public Use
  Company Number: US-PFIZER INC-2012175008

PATIENT
  Age: 62 Year
  Sex: Male

DRUGS (14)
  1. HEPARIN SODIUM [Suspect]
     Indication: RENAL ARTERY STENT PLACEMENT
     Dosage: 3000 IU, single
     Route: 042
     Dates: start: 20120718, end: 20120718
  2. CLONIDINE [Concomitant]
     Dosage: 0.2 mg, 2x/day
     Route: 048
  3. DOXAZOSIN [Concomitant]
     Dosage: 8 mg, Bedtime
  4. RENAGEL [Concomitant]
     Dosage: 1600 mg, 1x/day
     Route: 048
  5. RENAGEL [Concomitant]
     Dosage: 1600 mg, 1x/day (800 mg 2 tab(s) P0 daily)
     Route: 048
  6. PERCOCET [Concomitant]
     Indication: PAIN
     Dosage: 7.5/325 every 6 hours
     Route: 048
  7. AMLODIPINE [Concomitant]
     Dosage: 10 mg, Bedtime
     Route: 048
  8. PEPCID [Concomitant]
     Dosage: 20 mg, every 12 hours
     Route: 048
  9. HYDRALAZINE [Concomitant]
     Dosage: 100 mg, 2x/day
     Route: 048
  10. LABETALOL [Concomitant]
     Dosage: 100 mg, 2x/day
     Route: 048
  11. LAMICTAL [Concomitant]
     Dosage: 200 mg, 1x/day
     Route: 048
  12. LEXAPRO [Concomitant]
     Dosage: 20 mg, 1x/day
     Route: 048
  13. ASPIRIN [Concomitant]
     Dosage: 325 mg, 1x/day
     Route: 048
  14. PLAVIX [Concomitant]
     Dosage: 75 mg, 1x/day
     Route: 048

REACTIONS (2)
  - Basal ganglia haemorrhage [Fatal]
  - Intraventricular haemorrhage [None]
